FAERS Safety Report 10508950 (Version 1)
Quarter: 2014Q3

REPORT INFORMATION
  Report Type: Spontaneous
  Country: US (occurrence: None)
  Receive Date: 20140915
  Receipt Date: 20140915
  Transmission Date: 20150326
  Serious: Yes (Other)
  Sender: FDA-Public Use
  Company Number: 2014-US-002282

PATIENT
  Age: 40 Year
  Sex: Female
  Weight: 81.6 kg

DRUGS (14)
  1. NUVIGIL [Concomitant]
     Active Substance: ARMODAFINIL
  2. WELLBUTRIN [Concomitant]
     Active Substance: BUPROPION HYDROCHLORIDE
  3. XYREM [Suspect]
     Active Substance: SODIUM OXYBATE
     Indication: CATAPLEXY
     Route: 048
     Dates: start: 200703, end: 2007
  4. LISINOPRL [Suspect]
     Active Substance: LISINOPRIL
     Indication: HYPERTENSION
  5. CYMBALTA [Concomitant]
     Active Substance: DULOXETINE HYDROCHLORIDE
  6. CLONIDINE. [Concomitant]
     Active Substance: CLONIDINE
  7. IBUPROFEN. [Concomitant]
     Active Substance: IBUPROFEN
  8. MULTIVITAMINS [Concomitant]
     Active Substance: VITAMINS
  9. XYREM [Suspect]
     Active Substance: SODIUM OXYBATE
     Indication: NARCOLEPSY
     Route: 048
     Dates: start: 200703, end: 2007
  10. CATAPRES [Concomitant]
     Active Substance: CLONIDINE HYDROCHLORIDE
  11. GABAPENTIN. [Concomitant]
     Active Substance: GABAPENTIN
  12. FLUOXETINE [Concomitant]
     Active Substance: FLUOXETINE\FLUOXETINE HYDROCHLORIDE
  13. SELENIUM [Concomitant]
     Active Substance: SELENIUM
  14. PROZAC [Concomitant]
     Active Substance: FLUOXETINE HYDROCHLORIDE

REACTIONS (11)
  - Fatigue [None]
  - Wrong technique in drug usage process [None]
  - Hypertension [None]
  - Dizziness [None]
  - Hypersensitivity [None]
  - Amnesia [None]
  - Tremor [None]
  - Smear cervix abnormal [None]
  - Nausea [None]
  - Stress [None]
  - Anxiety [None]

NARRATIVE: CASE EVENT DATE: 2014
